FAERS Safety Report 11774302 (Version 1)
Quarter: 2015Q4

REPORT INFORMATION
  Report Type: Spontaneous
  Country: TW (occurrence: TW)
  Receive Date: 20151124
  Receipt Date: 20151124
  Transmission Date: 20160304
  Serious: Yes (Other)
  Sender: FDA-Public Use
  Company Number: TW-TAKEDA-2015TUS016433

PATIENT
  Age: 59 Year
  Sex: Male

DRUGS (3)
  1. HYDROCORTISONE. [Suspect]
     Active Substance: HYDROCORTISONE
     Indication: CUTANEOUS SYMPTOM
     Dosage: UNK
     Route: 061
     Dates: start: 20140213
  2. FEXOFENADINE [Suspect]
     Active Substance: FEXOFENADINE\FEXOFENADINE HYDROCHLORIDE
     Indication: CUTANEOUS SYMPTOM
     Dosage: 180 MG, UNK
     Route: 065
     Dates: start: 20140213
  3. FEBURIC [Suspect]
     Active Substance: FEBUXOSTAT
     Indication: GOUT
     Dosage: 40 MG, QD
     Route: 048
     Dates: start: 20131209, end: 20140213

REACTIONS (2)
  - Rash [Unknown]
  - Arthralgia [Unknown]
